FAERS Safety Report 7304697-8 (Version None)
Quarter: 2011Q1

REPORT INFORMATION
  Report Type: 
  Country: None (occurrence: None)
  Receive Date: 20110222
  Receipt Date: 20110215
  Transmission Date: 20110831
  Serious: No
  Sender: FDA-Public Use
  Company Number: US-PFIZER INC-2010152625

PATIENT
  Sex: Male

DRUGS (1)
  1. VFEND [Suspect]
     Indication: CHRONIC GRANULOMATOUS DISEASE
     Dosage: UNK
     Route: 048

REACTIONS (2)
  - LIP DISCOLOURATION [None]
  - CHAPPED LIPS [None]
